FAERS Safety Report 13199097 (Version 2)
Quarter: 2017Q1

REPORT INFORMATION
  Report Type: Report from Study
  Country: AR (occurrence: AR)
  Receive Date: 20170208
  Receipt Date: 20170223
  Transmission Date: 20170428
  Serious: Yes (Hospitalization)
  Sender: FDA-Public Use
  Company Number: PHHY2017AR019709

PATIENT
  Age: 64 Year
  Sex: Female

DRUGS (1)
  1. DIOVAN [Suspect]
     Active Substance: VALSARTAN
     Indication: HYPERTENSION
     Dosage: 80 OT (MANY YEARS AGO), QD
     Route: 065

REACTIONS (6)
  - Cerebral haemorrhage [Recovered/Resolved with Sequelae]
  - Memory impairment [Unknown]
  - Loss of consciousness [Unknown]
  - Coma [Recovered/Resolved]
  - Malaise [Recovering/Resolving]
  - Headache [Unknown]

NARRATIVE: CASE EVENT DATE: 201607
